FAERS Safety Report 14559427 (Version 2)
Quarter: 2019Q4

REPORT INFORMATION
  Report Type: Spontaneous
  Country: GB (occurrence: GB)
  Receive Date: 20180221
  Receipt Date: 20191224
  Transmission Date: 20200122
  Serious: Yes (Congenital Anomaly)
  Sender: FDA-Public Use
  Company Number: GB-TEVA-796929ACC

PATIENT

DRUGS (1)
  1. FLUOXETINE [Suspect]
     Active Substance: FLUOXETINE HYDROCHLORIDE
     Indication: ANXIETY
     Dosage: STARTED PRE-PREGNANCY AND ON IT THROUGH PREGNANCY
     Route: 064

REACTIONS (6)
  - Foetal exposure during pregnancy [Unknown]
  - Ventricular septal defect [Unknown]
  - Necrotising enterocolitis neonatal [Unknown]
  - Atrial septal defect [Unknown]
  - Gastrooesophageal reflux disease [Unknown]
  - Premature baby [Unknown]
